FAERS Safety Report 11103339 (Version 1)
Quarter: 2015Q2

REPORT INFORMATION
  Report Type: Spontaneous
  Country: US (occurrence: None)
  Receive Date: 20150508
  Receipt Date: 20150508
  Transmission Date: 20150821
  Serious: No
  Sender: FDA-Public Use
  Company Number: None

PATIENT
  Age: 20 Year
  Sex: Female

DRUGS (1)
  1. DISULFIRAM. [Suspect]
     Active Substance: DISULFIRAM
     Dosage: 1000 MG ?PO?DAYS 1-28
     Route: 048
     Dates: start: 20150416, end: 20150502

REACTIONS (6)
  - Psychotic disorder [None]
  - Swollen tongue [None]
  - Tachycardia [None]
  - Aphasia [None]
  - Hypoaesthesia [None]
  - Blindness transient [None]

NARRATIVE: CASE EVENT DATE: 20150503
